FAERS Safety Report 4805194-1 (Version None)
Quarter: 2005Q4

REPORT INFORMATION
  Report Type: 
  Country: None (occurrence: None)
  Receive Date: 20051017
  Receipt Date: 20051003
  Transmission Date: 20060501
  Serious: Yes (Other)
  Sender: FDA-Public Use
  Company Number: 2005136541

PATIENT
  Age: 56 Year
  Sex: Male
  Weight: 60.782 kg

DRUGS (1)
  1. VISINE EYE DROPS [Suspect]
     Indication: OCULAR HYPERAEMIA
     Dosage: COUPLE OF DROPS, ONCE, OPTHALMIC
     Route: 047
     Dates: start: 20051002, end: 20051002

REACTIONS (4)
  - BLINDNESS TRANSIENT [None]
  - EYE IRRITATION [None]
  - OCULAR HYPERAEMIA [None]
  - POOR QUALITY DRUG ADMINISTERED [None]
